FAERS Safety Report 22120909 (Version 2)
Quarter: 2023Q1

REPORT INFORMATION
  Report Type: Other
  Country: US (occurrence: None)
  Receive Date: 20230321
  Receipt Date: 20230324
  Transmission Date: 20230417
  Serious: Yes (Death)
  Sender: FDA-Public Use
  Company Number: US-ROCHE-2764819

PATIENT
  Age: 80 Year
  Sex: Male
  Weight: 58.566 kg

DRUGS (7)
  1. HERCEPTIN [Suspect]
     Active Substance: TRASTUZUMAB
     Indication: Gallbladder cancer
     Dosage: IV 6 MG/KG LOADING DOSE 360 MG (133 LBS), ON DAY 1 AND DAY 15, FORM STRENGTH: 240 MG, IV 6 MG/KG REG
     Route: 042
  2. HERCEPTIN [Suspect]
     Active Substance: TRASTUZUMAB
     Indication: Iron deficiency anaemia
     Dosage: IV 6 MG/KG LOADING DOSE 360 MG (133 LBS), ON DAY 1 AND DAY 15, FORM STRENGTH: 240 MG, IV 6 MG/KG REG
     Route: 042
     Dates: start: 20210203
  3. HERCEPTIN [Suspect]
     Active Substance: TRASTUZUMAB
     Indication: Deficiency anaemia
     Route: 042
  4. HERCEPTIN [Suspect]
     Active Substance: TRASTUZUMAB
     Indication: Agranulocytosis
     Dosage: DURATION 30 MIN, ORDER DOSE WAS 4.1 MG/KG, PROTOCOL DOSE BASIS 6 MG/KG. LOADING DOSE INFUSED OVER 90
     Route: 042
     Dates: start: 20210215
  5. HERCEPTIN [Suspect]
     Active Substance: TRASTUZUMAB
     Indication: Chemotherapy
  6. HERCEPTIN [Suspect]
     Active Substance: TRASTUZUMAB
     Indication: Anaemia
  7. TAXOL [Concomitant]
     Active Substance: PACLITAXEL

REACTIONS (2)
  - Cholangiocarcinoma [Fatal]
  - Off label use [Unknown]

NARRATIVE: CASE EVENT DATE: 20220706
